FAERS Safety Report 8228934-0 (Version None)
Quarter: 2012Q1

REPORT INFORMATION
  Report Type: 
  Country: None (occurrence: None)
  Receive Date: 20120322
  Receipt Date: 20120312
  Transmission Date: 20120608
  Serious: Yes (Hospitalization, Other)
  Sender: FDA-Public Use
  Company Number: DE-JNJFOC-20120205066

PATIENT
  Sex: Male

DRUGS (13)
  1. RAMIPRIL [Concomitant]
     Dosage: OM
  2. METOPROLOL TARTRATE [Concomitant]
     Dosage: OM
  3. LAKTULOSE [Concomitant]
     Dosage: OM
  4. OXYCODONE HYDROCHLORIDE [Concomitant]
  5. XARELTO [Suspect]
     Indication: THROMBOSIS PROPHYLAXIS
     Route: 048
     Dates: start: 20120131, end: 20120229
  6. XARELTO [Suspect]
     Indication: KNEE ARTHROPLASTY
     Route: 048
     Dates: start: 20120131, end: 20120229
  7. DIPYRONE TAB [Concomitant]
  8. OMEPRAZOLE [Concomitant]
     Dosage: OM
  9. ACETAMINOPHEN [Concomitant]
  10. FUROSEMIDE [Concomitant]
     Dosage: OM
  11. AMITRIPTYLINE HCL [Concomitant]
  12. ACETYLSALICYLIC ACID SRT [Concomitant]
     Dates: start: 20120119
  13. ACETYLSALICYLIC ACID SRT [Concomitant]
     Dates: start: 20120213

REACTIONS (4)
  - CEREBROVASCULAR ACCIDENT [None]
  - HEMIPARESIS [None]
  - DYSARTHRIA [None]
  - ISCHAEMIC CEREBRAL INFARCTION [None]
